FAERS Safety Report 20976817 (Version 1)
Quarter: 2022Q2

REPORT INFORMATION
  Report Type: Spontaneous
  Country: BG (occurrence: None)
  Receive Date: 20220617
  Receipt Date: 20220617
  Transmission Date: 20220720
  Serious: Yes (Death, Hospitalization)
  Sender: FDA-Public Use
  Company Number: 2022A223930

PATIENT
  Age: 815 Month
  Sex: Male

DRUGS (5)
  1. DAPAGLIFLOZIN [Suspect]
     Active Substance: DAPAGLIFLOZIN
     Indication: Cardiac failure
     Route: 048
     Dates: start: 20220314
  2. TRIFAS [Concomitant]
  3. ENTRESTO [Concomitant]
     Active Substance: SACUBITRIL\VALSARTAN
  4. ELIQUIS [Concomitant]
     Active Substance: APIXABAN
  5. DIGOXIN [Concomitant]
     Active Substance: DIGOXIN

REACTIONS (3)
  - Death [Fatal]
  - Cardiac failure [Unknown]
  - Blood creatinine increased [Unknown]

NARRATIVE: CASE EVENT DATE: 20220606
